FAERS Safety Report 12390612 (Version 1)
Quarter: 2016Q2

REPORT INFORMATION
  Report Type: Report from Study
  Country: US (occurrence: US)
  Receive Date: 20160520
  Receipt Date: 20160520
  Transmission Date: 20160815
  Serious: Yes (Other)
  Sender: FDA-Public Use
  Company Number: US-009507513-1605USA008673

PATIENT
  Age: 61 Year
  Sex: Female

DRUGS (3)
  1. NOVOLOG [Suspect]
     Active Substance: INSULIN ASPART
     Dosage: UNK
  2. JANUVIA [Suspect]
     Active Substance: SITAGLIPTIN PHOSPHATE
     Dosage: UNK
     Route: 048
  3. TOUJEO [Suspect]
     Active Substance: INSULIN GLARGINE
     Dosage: UNK

REACTIONS (6)
  - Brain neoplasm [Unknown]
  - Pain [Unknown]
  - Extremity necrosis [Unknown]
  - Blood glucose increased [Unknown]
  - Sleep disorder [Unknown]
  - Medication error [Unknown]

NARRATIVE: CASE EVENT DATE: 20160517
